FAERS Safety Report 8263523-3 (Version None)
Quarter: 2012Q1

REPORT INFORMATION
  Report Type: 
  Country: None (occurrence: None)
  Receive Date: 20120327
  Receipt Date: 20100722
  Transmission Date: 20120608
  Serious: Yes (Hospitalization)
  Sender: FDA-Public Use
  Company Number: PHHY2010US28239

PATIENT
  Age: 74 Year
  Sex: Male
  Weight: 59.4 kg

DRUGS (5)
  1. GLEEVEC [Suspect]
     Indication: CHRONIC MYELOID LEUKAEMIA
     Dosage: 200 MG, DAILY
     Dates: start: 20100309
  2. ZOCOR [Concomitant]
  3. METOPROLOL TARTRATE [Concomitant]
  4. PROSCAR [Concomitant]
  5. NEXIUM (ESOMERPRAZOLE MAGNESIUM) [Concomitant]

REACTIONS (5)
  - PLATELET COUNT DECREASED [None]
  - URINARY TRACT INFECTION [None]
  - EYE SWELLING [None]
  - RED BLOOD CELL COUNT DECREASED [None]
  - OEDEMA PERIPHERAL [None]
